FAERS Safety Report 17285579 (Version 3)
Quarter: 2020Q3

REPORT INFORMATION
  Report Type: Report from Study
  Country: US (occurrence: US)
  Receive Date: 20200117
  Receipt Date: 20200915
  Transmission Date: 20201102
  Serious: No
  Sender: FDA-Public Use
  Company Number: NVSC2020US008666

PATIENT
  Age: 62 Year
  Sex: Female

DRUGS (2)
  1. ENTRESTO [Suspect]
     Active Substance: SACUBITRIL\VALSARTAN
     Dosage: 97103 MG, BID
     Route: 048
  2. ENTRESTO [Suspect]
     Active Substance: SACUBITRIL\VALSARTAN
     Indication: CARDIAC FAILURE
     Dosage: 1 DF, (49 MG SACUBITRIL, 51 MG VALSARTAN), BID
     Route: 048
     Dates: start: 201911

REACTIONS (9)
  - Pain in extremity [Recovering/Resolving]
  - Dizziness [Unknown]
  - Back pain [Recovering/Resolving]
  - Chest pain [Unknown]
  - Sinusitis [Recovering/Resolving]
  - Headache [Recovering/Resolving]
  - Hypotension [Recovering/Resolving]
  - Nasopharyngitis [Recovered/Resolved]
  - Fatigue [Recovering/Resolving]

NARRATIVE: CASE EVENT DATE: 201911
